FAERS Safety Report 9619759 (Version 2)
Quarter: 2013Q4

REPORT INFORMATION
  Report Type: Spontaneous
  Country: US (occurrence: US)
  Receive Date: 20131014
  Receipt Date: 20131027
  Transmission Date: 20140711
  Serious: No
  Sender: FDA-Public Use
  Company Number: US-009507513-1310USA005790

PATIENT
  Age: 59 Year
  Sex: Male

DRUGS (2)
  1. IVERMECTIN [Suspect]
     Indication: STRONGYLOIDIASIS
  2. ALBENDAZOLE [Concomitant]

REACTIONS (1)
  - Drug ineffective [Unknown]
